FAERS Safety Report 7425462-7 (Version None)
Quarter: 2011Q2

REPORT INFORMATION
  Report Type: 
  Country: None (occurrence: None)
  Receive Date: 20110420
  Receipt Date: 20110411
  Transmission Date: 20111010
  Serious: Yes (Hospitalization, Other)
  Sender: FDA-Public Use
  Company Number: US-RB-024453-11

PATIENT
  Age: 59 Year
  Sex: Female

DRUGS (1)
  1. DELSYM [Suspect]
     Dosage: PATIENT WAS TAKING A DOSE ONCE EVERY 12 HOURS BUT MAY HAVE TAKEN MORE.
     Route: 048

REACTIONS (4)
  - DEPRESSED LEVEL OF CONSCIOUSNESS [None]
  - MALAISE [None]
  - HYPERTENSION [None]
  - EUPHORIC MOOD [None]
